FAERS Safety Report 9239032 (Version 1)
Quarter: 2013Q2

REPORT INFORMATION
  Report Type: Spontaneous
  Country: JP (occurrence: JP)
  Receive Date: 20130418
  Receipt Date: 20130418
  Transmission Date: 20140414
  Serious: Yes (Other)
  Sender: FDA-Public Use
  Company Number: JP-ALLERGAN-1305357US

PATIENT
  Sex: Female

DRUGS (1)
  1. ALESION TABLET [Suspect]
     Indication: PARKINSON^S DISEASE
     Route: 048

REACTIONS (1)
  - Cerebral infarction [Unknown]
